FAERS Safety Report 8538056 (Version 4)
Quarter: 2013Q1

REPORT INFORMATION
  Report Type: Report from Study
  Country: BR (occurrence: BR)
  Receive Date: 20120501
  Receipt Date: 20130329
  Transmission Date: 20140127
  Serious: Yes (Hospitalization)
  Sender: FDA-Public Use
  Company Number: BR-JNJFOC-20120401579

PATIENT
  Age: 71 Year
  Sex: Male
  Weight: 57.3 kg

DRUGS (14)
  1. ABIRATERONE ACETATE [Suspect]
     Indication: PROSTATE CANCER METASTATIC
     Route: 048
     Dates: start: 20111213, end: 20120419
  2. ABIRATERONE ACETATE [Suspect]
     Indication: PROSTATE CANCER METASTATIC
     Route: 048
     Dates: start: 20120419, end: 20120424
  3. PREDNISONE [Suspect]
     Indication: PROSTATE CANCER METASTATIC
     Route: 048
     Dates: start: 20111212
  4. VITAMIN C [Concomitant]
     Indication: PRODUCT USED FOR UNKNOWN INDICATION
     Route: 065
     Dates: start: 20120205
  5. DIMORF [Concomitant]
     Indication: BACK PAIN
     Route: 065
     Dates: start: 20120207
  6. DIPYRONE [Concomitant]
     Indication: BACK PAIN
     Route: 065
     Dates: start: 20120207
  7. OMEPRAZOLE [Concomitant]
     Indication: ANAL HAEMORRHAGE
     Route: 065
     Dates: start: 20120205
  8. BUSCOPAN [Concomitant]
     Indication: ANAL HAEMORRHAGE
     Route: 065
     Dates: start: 20120205
  9. B-VITAMIN COMPLEX [Concomitant]
     Indication: ANAL HAEMORRHAGE
     Route: 065
     Dates: start: 20120206
  10. CEFTRIAXONE [Concomitant]
     Route: 042
     Dates: start: 20120419, end: 20120420
  11. SPIRONOLACTONE [Concomitant]
     Dates: start: 20120419, end: 20120427
  12. DILTIAZEM [Concomitant]
     Dates: start: 20120419, end: 20120427
  13. FUROSEMIDE [Concomitant]
     Dates: start: 20120419, end: 20120426
  14. VENLAFAXINE [Concomitant]
     Dates: start: 20120419, end: 20120426

REACTIONS (4)
  - Anaemia [Recovered/Resolved]
  - Lung infection [Recovered/Resolved]
  - General physical health deterioration [Recovered/Resolved]
  - Cardiac failure [Recovered/Resolved]
